FAERS Safety Report 21616326 (Version 7)
Quarter: 2023Q1

REPORT INFORMATION
  Report Type: Report from Study
  Country: US (occurrence: US)
  Receive Date: 20221118
  Receipt Date: 20230325
  Transmission Date: 20230418
  Serious: Yes (Other)
  Sender: FDA-Public Use
  Company Number: US-ABBVIE-4206297

PATIENT
  Sex: Female

DRUGS (2)
  1. RINVOQ [Suspect]
     Active Substance: UPADACITINIB
     Indication: Dermatitis atopic
     Dosage: FORM STRENGTH: 15 MG ER
     Route: 048
  2. RINVOQ [Suspect]
     Active Substance: UPADACITINIB
     Indication: Dermatitis atopic
     Dosage: FORM STRENGTH: 15 MG ER
     Route: 048
     Dates: start: 20211101

REACTIONS (12)
  - Neoplasm malignant [Unknown]
  - Rash erythematous [Unknown]
  - Dermatitis atopic [Unknown]
  - Skin cancer [Unknown]
  - Skin swelling [Unknown]
  - Skin disorder [Unknown]
  - Ear discomfort [Unknown]
  - Dry skin [Unknown]
  - Allergy test positive [Unknown]
  - Skin burning sensation [Unknown]
  - Micrographic skin surgery [Unknown]
  - Adverse reaction [Unknown]

NARRATIVE: CASE EVENT DATE: 20220101
